FAERS Safety Report 14939378 (Version 3)
Quarter: 2019Q1

REPORT INFORMATION
  Report Type: Spontaneous
  Country: US (occurrence: US)
  Receive Date: 20180525
  Receipt Date: 20190104
  Transmission Date: 20190417
  Serious: No
  Sender: FDA-Public Use
  Company Number: US-PFIZER INC-2015314625

PATIENT
  Age: 66 Year
  Sex: Female
  Weight: 61 kg

DRUGS (3)
  1. LYRICA [Suspect]
     Active Substance: PREGABALIN
     Indication: NEURALGIA
     Dosage: 75 MG, 3X/DAY (1 CAPSULE 3 TIMES A DAY BY ORAL ROUTE, AS DIRECTED FOR 14 DAYS/DIRECTED FOR 30 DAYS)
     Route: 048
     Dates: end: 201804
  2. LYRICA [Suspect]
     Active Substance: PREGABALIN
     Indication: NEURITIS
  3. LYRICA [Suspect]
     Active Substance: PREGABALIN
     Indication: FIBROMYALGIA
     Dosage: 75 MG, 2X/DAY
     Route: 048

REACTIONS (3)
  - Limb discomfort [Not Recovered/Not Resolved]
  - Muscle spasms [Unknown]
  - Product use issue [Unknown]

NARRATIVE: CASE EVENT DATE: 2018
